FAERS Safety Report 25615619 (Version 2)
Quarter: 2025Q3

REPORT INFORMATION
  Report Type: Report from Study
  Country: US (occurrence: US)
  Receive Date: 20250729
  Receipt Date: 20250821
  Transmission Date: 20251020
  Serious: Yes (Other)
  Sender: ABBVIE
  Company Number: US-ABBVIE-6388350

PATIENT
  Age: 75 Year
  Sex: Female
  Weight: 59 kg

DRUGS (2)
  1. RINVOQ [Suspect]
     Active Substance: UPADACITINIB
     Indication: Crohn^s disease
     Route: 048
     Dates: start: 20250428
  2. RINVOQ [Suspect]
     Active Substance: UPADACITINIB

REACTIONS (2)
  - Deafness [Recovering/Resolving]
  - Viral infection [Recovering/Resolving]

NARRATIVE: CASE EVENT DATE: 20250101
